FAERS Safety Report 21753171 (Version 1)
Quarter: 2022Q4

REPORT INFORMATION
  Report Type: Spontaneous
  Country: US (occurrence: None)
  Receive Date: 20221219
  Receipt Date: 20221219
  Transmission Date: 20230112
  Serious: Yes (Death)
  Sender: FDA-Public Use
  Company Number: None

PATIENT
  Age: 87 Year
  Sex: Male
  Weight: 82.1 kg

DRUGS (16)
  1. ABIRATERONE ACETATE [Suspect]
     Active Substance: ABIRATERONE ACETATE
     Indication: Prostate cancer
     Dosage: FREQUENCY : DAILY;?
     Route: 048
     Dates: start: 202211, end: 20221217
  2. ASPIRIN [Concomitant]
     Active Substance: ASPIRIN
  3. Aorvastatin [Concomitant]
  4. CLOPIDOGREL [Concomitant]
     Active Substance: CLOPIDOGREL BISULFATE
  5. CLOTRIMAZOLE [Concomitant]
     Active Substance: CLOTRIMAZOLE
  6. Glipizide and Metformin [Concomitant]
  7. JANUVIA [Concomitant]
     Active Substance: SITAGLIPTIN PHOSPHATE
  8. LANTUS [Concomitant]
     Active Substance: INSULIN GLARGINE
  9. LUPRON DEPOT [Concomitant]
     Active Substance: LEUPROLIDE ACETATE
  10. METOPROLOL [Concomitant]
     Active Substance: METOPROLOL
  11. NITROGLYCERIN [Concomitant]
     Active Substance: NITROGLYCERIN
  12. OFLOXACIN [Concomitant]
     Active Substance: OFLOXACIN
  13. OMEPRAZOLE [Concomitant]
     Active Substance: OMEPRAZOLE
  14. PREDNISONE [Concomitant]
  15. RAMIPRIL [Concomitant]
     Active Substance: RAMIPRIL
  16. REPAGLINIDE [Concomitant]
     Active Substance: REPAGLINIDE

REACTIONS (1)
  - Death [None]

NARRATIVE: CASE EVENT DATE: 20221217
